FAERS Safety Report 7929437-0 (Version None)
Quarter: 2011Q4

REPORT INFORMATION
  Report Type: 
  Country: None (occurrence: None)
  Receive Date: 20111121
  Receipt Date: 20111117
  Transmission Date: 20120403
  Serious: No
  Sender: FDA-Public Use
  Company Number: US-BIOGENIDEC-2011BI044039

PATIENT
  Age: 53 Year
  Sex: Female

DRUGS (3)
  1. CARBAMAZEPINE [Concomitant]
     Indication: NEURALGIA
  2. NEURONTIN [Concomitant]
     Indication: NEURALGIA
  3. TYSABRI [Suspect]
     Indication: MULTIPLE SCLEROSIS
     Route: 042
     Dates: start: 20110805

REACTIONS (4)
  - TREMOR [None]
  - TRIGEMINAL NEURALGIA [None]
  - MUSCLE SPASMS [None]
  - NEURALGIA [None]
